FAERS Safety Report 8050402-X (Version None)
Quarter: 2012Q1

REPORT INFORMATION
  Report Type: 
  Country: None (occurrence: None)
  Receive Date: 20120117
  Receipt Date: 20120103
  Transmission Date: 20120608
  Serious: Yes (Hospitalization)
  Sender: FDA-Public Use
  Company Number: US-ACTELION-A-NJ2011-58848

PATIENT

DRUGS (7)
  1. DIGOXIN [Concomitant]
  2. TRACLEER [Suspect]
     Indication: PULMONARY ARTERIAL HYPERTENSION
     Dosage: UNK
     Route: 048
     Dates: end: 20111201
  3. COUMADIN [Concomitant]
  4. DILTIAZEM CD [Concomitant]
  5. PREVACID [Concomitant]
  6. TRACLEER [Suspect]
     Dosage: UNK
     Route: 048
     Dates: start: 20090312
  7. IMDUR [Concomitant]

REACTIONS (5)
  - INTERNATIONAL NORMALISED RATIO INCREASED [None]
  - ACETABULUM FRACTURE [None]
  - HYPOXIA [None]
  - DYSPNOEA [None]
  - ROAD TRAFFIC ACCIDENT [None]
